FAERS Safety Report 18978614 (Version 1)
Quarter: 2021Q1

REPORT INFORMATION
  Report Type: Report from Study
  Country: US (occurrence: US)
  Receive Date: 20210308
  Receipt Date: 20210308
  Transmission Date: 20210420
  Serious: Yes (Other)
  Sender: FDA-Public Use
  Company Number: US-TAKEDA-US202017202

PATIENT
  Age: 56 Year
  Sex: Female
  Weight: 79 kg

DRUGS (11)
  1. ROSUVASTATIN CALCIUM. [Concomitant]
     Active Substance: ROSUVASTATIN CALCIUM
     Indication: DYSLIPIDAEMIA
     Dosage: 20 MILLIGRAM
     Route: 048
     Dates: start: 20180621
  2. DESONIDE. [Concomitant]
     Active Substance: DESONIDE
     Indication: CUTANEOUS LUPUS ERYTHEMATOSUS
     Dosage: UNK
     Route: 061
     Dates: start: 2015
  3. ASPIRIN [ACETYLSALICYLIC ACID] [Concomitant]
     Active Substance: ASPIRIN
     Indication: HEADACHE
     Dosage: 325 MILLIGRAM
     Route: 048
     Dates: start: 1985
  4. DOXYCYCLINE. [Concomitant]
     Active Substance: DOXYCYCLINE
     Indication: CUTANEOUS LUPUS ERYTHEMATOSUS
     Dosage: 100 MILLIGRAM
     Route: 048
     Dates: start: 20190501
  5. ACETAMINOPHEN. [Concomitant]
     Active Substance: ACETAMINOPHEN
     Indication: HEADACHE
     Dosage: 325 MILLIGRAM
     Route: 048
     Dates: start: 1985
  6. AMLODIPINE BESILATE [Concomitant]
     Active Substance: AMLODIPINE BESYLATE
     Indication: HYPERTENSION
     Dosage: 10 MILLIGRAM
     Route: 048
     Dates: start: 20180429
  7. 643 (LANADELUMAB) [Suspect]
     Active Substance: LANADELUMAB
     Indication: HEREDITARY ANGIOEDEMA
     Dosage: 300 MILLIGRAM, 1X/2WKS (ONCE EVERY 2 WEEKS)
     Route: 065
     Dates: start: 20190807
  8. IBUPROFEN. [Concomitant]
     Active Substance: IBUPROFEN
     Indication: HEADACHE
     Dosage: 200 MILLIGRAM
     Route: 048
     Dates: start: 20170711
  9. CLOBETASOL [Concomitant]
     Active Substance: CLOBETASOL
     Indication: CUTANEOUS LUPUS ERYTHEMATOSUS
     Dosage: 1 OTHER
     Route: 061
     Dates: start: 2016
  10. OXYCONTIN [Concomitant]
     Active Substance: OXYCODONE HYDROCHLORIDE
     Indication: BACK PAIN
     Dosage: 30 UNK
     Route: 048
     Dates: start: 20170401
  11. HYDROCODONE BITARTRATE AND ACETAMINOPHEN [Concomitant]
     Active Substance: ACETAMINOPHEN\HYDROCODONE BITARTRATE
     Indication: BACK PAIN
     Dosage: 1 DOSAGE FORM
     Route: 048
     Dates: start: 20170929

REACTIONS (2)
  - Lung adenocarcinoma [Not Recovered/Not Resolved]
  - Hereditary angioedema [Recovered/Resolved]

NARRATIVE: CASE EVENT DATE: 20200412
